FAERS Safety Report 11390627 (Version 1)
Quarter: 2015Q3

REPORT INFORMATION
  Report Type: Spontaneous
  Country: US (occurrence: US)
  Receive Date: 20150818
  Receipt Date: 20150818
  Transmission Date: 20151125
  Serious: No
  Sender: FDA-Public Use
  Company Number: US-ROCHE-656827

PATIENT
  Sex: Male
  Weight: 78.5 kg

DRUGS (9)
  1. PEGASYS [Suspect]
     Active Substance: PEGINTERFERON ALFA-2A
     Dosage: DOSAGE REDUCED
     Route: 058
  2. RIBASPHERE [Suspect]
     Active Substance: RIBAVIRIN
     Route: 048
  3. RIBAVIRIN. [Suspect]
     Active Substance: RIBAVIRIN
     Indication: HEPATITIS C
     Dosage: DIVIDED DOSES
     Route: 048
  4. VICTRELIS [Concomitant]
     Active Substance: BOCEPREVIR
     Indication: HEPATITIS C
     Route: 065
  5. PEGASYS [Suspect]
     Active Substance: PEGINTERFERON ALFA-2A
     Dosage: 12 WEEKS THERAPY.
     Route: 058
  6. RIBASPHERE [Suspect]
     Active Substance: RIBAVIRIN
     Route: 048
  7. PEGASYS [Suspect]
     Active Substance: PEGINTERFERON ALFA-2A
     Indication: HEPATITIS C
     Dosage: FORM: PRE FILLED SYRINGE
     Route: 058
  8. RIBASPHERE [Suspect]
     Active Substance: RIBAVIRIN
     Indication: HEPATITIS C
     Dosage: TWO DIVIDED DOSES. 12 WEEKS THERAPY.
     Route: 048
     Dates: start: 20140215
  9. SOVALDI [Concomitant]
     Active Substance: SOFOSBUVIR
     Indication: HEPATITIS C
     Dosage: 12 WEEKS THERAPY.
     Route: 048
     Dates: start: 20140215

REACTIONS (11)
  - Fatigue [Unknown]
  - Memory impairment [Unknown]
  - Diarrhoea [Unknown]
  - Haematology test abnormal [Unknown]
  - Weight decreased [Unknown]
  - Nausea [Unknown]
  - Pain [Unknown]
  - Tremor [Unknown]
  - Decreased appetite [Unknown]
  - Constipation [Unknown]
  - Headache [Unknown]
